FAERS Safety Report 6470356-7 (Version None)
Quarter: 2009Q4

REPORT INFORMATION
  Report Type: 
  Country: None (occurrence: None)
  Receive Date: 20091202
  Receipt Date: 20091202
  Transmission Date: 20100525
  Serious: Yes (Hospitalization)
  Sender: FDA-Public Use
  Company Number: None

PATIENT
  Age: 54 Year
  Sex: Male

DRUGS (1)
  1. CISPLATIN [Suspect]
     Indication: METASTASES TO LIVER
     Dosage: 128 MG ONCE OTHER
     Route: 050
     Dates: start: 20090831, end: 20090831

REACTIONS (5)
  - DRUG INTOLERANCE [None]
  - NAUSEA [None]
  - NO THERAPEUTIC RESPONSE [None]
  - ODYNOPHAGIA [None]
  - VOMITING [None]
